FAERS Safety Report 8573043-4 (Version None)
Quarter: 2012Q3

REPORT INFORMATION
  Report Type: 
  Country: None (occurrence: None)
  Receive Date: 20120806
  Receipt Date: 20120125
  Transmission Date: 20120928
  Serious: No
  Sender: FDA-Public Use
  Company Number: US-009507513-2012SP007079

PATIENT

DRUGS (1)
  1. DR. SCHOLLS LIQUID CORN CALLUS REMOVER [Suspect]
     Indication: PRODUCT USED FOR UNKNOWN INDICATION
     Dosage: UNK UNK, UNKNOWN
     Route: 061
     Dates: start: 20120121, end: 20120124

REACTIONS (1)
  - DRUG INEFFECTIVE [None]
